FAERS Safety Report 4363187-5 (Version None)
Quarter: 2004Q2

REPORT INFORMATION
  Report Type: 
  Country: None (occurrence: None)
  Receive Date: 20040524
  Receipt Date: 20040216
  Transmission Date: 20050107
  Serious: No
  Sender: FDA-Public Use
  Company Number: US-GLAXOSMITHKLINE-A0498342A

PATIENT
  Age: 20 Year
  Sex: Male

DRUGS (6)
  1. BACTROBAN [Suspect]
     Indication: STAPHYLOCOCCAL INFECTION
     Dosage: 2PCT TWICE PER DAY
     Route: 045
     Dates: start: 20040205, end: 20040207
  2. ADVAIR DISKUS 100/50 [Concomitant]
  3. SINGULAIR [Concomitant]
  4. ALBUTEROL [Concomitant]
  5. NEXIUM [Concomitant]
  6. NASACORT [Concomitant]

REACTIONS (2)
  - EPISTAXIS [None]
  - TONGUE BLISTERING [None]
